FAERS Safety Report 9433266 (Version 1)
Quarter: 2013Q3

REPORT INFORMATION
  Report Type: Report from Study
  Country: IN (occurrence: IN)
  Receive Date: 20130731
  Receipt Date: 20130731
  Transmission Date: 20140515
  Serious: Yes (Death, Hospitalization)
  Sender: FDA-Public Use
  Company Number: IN-GLAXOSMITHKLINE-B0911420A

PATIENT
  Age: 45 Year
  Sex: Female

DRUGS (1)
  1. SERETIDE [Suspect]
     Indication: ASTHMA
     Dosage: 500UG TWICE PER DAY
     Route: 055

REACTIONS (5)
  - Death [Fatal]
  - Diabetes mellitus [Unknown]
  - Nephrolithiasis [Unknown]
  - Uterine leiomyoma [Unknown]
  - Dyspnoea [Unknown]
